FAERS Safety Report 23749801 (Version 2)
Quarter: 2024Q3

REPORT INFORMATION
  Report Type: Report from Study
  Country: US (occurrence: US)
  Receive Date: 20240417
  Receipt Date: 20240918
  Transmission Date: 20241017
  Serious: Yes (Other)
  Sender: ABBVIE
  Company Number: US-ABBVIE-5720995

PATIENT
  Age: 57 Year
  Sex: Male

DRUGS (1)
  1. HUMIRA [Suspect]
     Active Substance: ADALIMUMAB
     Indication: Hidradenitis
     Dosage: CITRATE FREE
     Route: 058
     Dates: start: 20221221

REACTIONS (6)
  - Medical device implantation [Unknown]
  - Postoperative wound infection [Recovering/Resolving]
  - Arthralgia [Unknown]
  - Device dislocation [Unknown]
  - Foot operation [Unknown]
  - Fall [Unknown]

NARRATIVE: CASE EVENT DATE: 20240903
